FAERS Safety Report 4966951-4 (Version None)
Quarter: 2006Q2

REPORT INFORMATION
  Report Type: 
  Country: None (occurrence: None)
  Receive Date: 20060403
  Receipt Date: 20060317
  Transmission Date: 20061013
  Serious: Yes (Hospitalization)
  Sender: FDA-Public Use
  Company Number: 223592

PATIENT
  Age: 60 Year
  Sex: Female

DRUGS (1)
  1. AVASTIN [Suspect]
     Indication: CERVIX CARCINOMA

REACTIONS (11)
  - ASTHENIA [None]
  - CEREBROVASCULAR ACCIDENT [None]
  - DIPLOPIA [None]
  - DISORIENTATION [None]
  - HALLUCINATIONS, MIXED [None]
  - ISCHAEMIA [None]
  - KLEBSIELLA INFECTION [None]
  - PYREXIA [None]
  - REVERSIBLE POSTERIOR LEUKOENCEPHALOPATHY SYNDROME [None]
  - SEPSIS [None]
  - URINARY TRACT INFECTION [None]
